FAERS Safety Report 25831244 (Version 4)
Quarter: 2025Q4

REPORT INFORMATION
  Report Type: Report from Study
  Country: US (occurrence: US)
  Receive Date: 20250922
  Receipt Date: 20251105
  Transmission Date: 20260118
  Serious: Yes (Hospitalization, Other)
  Sender: PFIZER
  Company Number: US-PFIZER INC-202500184078

PATIENT
  Age: 65 Year
  Sex: Male

DRUGS (12)
  1. LORBRENA [Suspect]
     Active Substance: LORLATINIB
     Indication: Lung neoplasm malignant
     Dosage: 100MG ONCE DAILY
     Route: 048
     Dates: start: 20250825, end: 20250911
  2. LORBRENA [Suspect]
     Active Substance: LORLATINIB
     Dosage: 100 MG, 1X/DAY
     Route: 048
  3. CEFDINIR [Concomitant]
     Active Substance: CEFDINIR
     Dosage: UNK
     Dates: end: 202509
  4. CODEINE PHOSPHATE\GUAIFENESIN [Concomitant]
     Active Substance: CODEINE PHOSPHATE\GUAIFENESIN
     Dosage: UNK
     Dates: end: 202509
  5. LINZESS [Concomitant]
     Active Substance: LINACLOTIDE
     Dosage: UNK
     Dates: end: 202509
  6. PANTOPRAZOLE [Concomitant]
     Active Substance: PANTOPRAZOLE
     Dosage: UNK
     Dates: end: 202509
  7. TRAMADOL [Concomitant]
     Active Substance: TRAMADOL
     Dosage: UNK
     Dates: end: 202509
  8. LACTULOSE [Concomitant]
     Active Substance: LACTULOSE
     Dosage: UNK
  9. LEVETIRACETAM [Concomitant]
     Active Substance: LEVETIRACETAM
     Dosage: UNK
  10. MEGESTROL ACETATE [Concomitant]
     Active Substance: MEGESTROL ACETATE
     Dosage: UNK
  11. MEMANTINE [Concomitant]
     Active Substance: MEMANTINE
     Dosage: UNK
  12. MIRTAZAPINE [Concomitant]
     Active Substance: MIRTAZAPINE
     Dosage: UNK

REACTIONS (4)
  - Myocardial infarction [Not Recovered/Not Resolved]
  - Lung disorder [Not Recovered/Not Resolved]
  - Dysphagia [Recovering/Resolving]
  - Choking [Recovering/Resolving]

NARRATIVE: CASE EVENT DATE: 20250901
